FAERS Safety Report 17076829 (Version 3)
Quarter: 2021Q2

REPORT INFORMATION
  Report Type: Report from Study
  Country: US (occurrence: US)
  Receive Date: 20191126
  Receipt Date: 20210511
  Transmission Date: 20210716
  Serious: No
  Sender: FDA-Public Use
  Company Number: US-SA-2019SA321851

PATIENT
  Age: 63 Year
  Sex: Female

DRUGS (11)
  1. BIMATOPROST. [Concomitant]
     Active Substance: BIMATOPROST
  2. ESTRADIOL. [Concomitant]
     Active Substance: ESTRADIOL
  3. MONTELUKAST SODIUM. [Concomitant]
     Active Substance: MONTELUKAST SODIUM
  4. ADVAIR HFA [Concomitant]
     Active Substance: FLUTICASONE PROPIONATE\SALMETEROL XINAFOATE
  5. VITAMINS NOS [Concomitant]
     Active Substance: VITAMINS
  6. VITAMIN D NOS [Concomitant]
     Active Substance: VITAMIN D NOS
  7. LISINOPRIL. [Concomitant]
     Active Substance: LISINOPRIL
  8. PROGESTERONE. [Concomitant]
     Active Substance: PROGESTERONE
  9. DUPILUMAB [Suspect]
     Active Substance: DUPILUMAB
     Indication: DERMATITIS ATOPIC
     Dosage: 600 MG, 1X
     Route: 058
     Dates: start: 20190601, end: 20190601
  10. DUPILUMAB [Suspect]
     Active Substance: DUPILUMAB
     Indication: ASTHMA
     Dosage: 300 MG, QOW
     Route: 058
  11. PROAIR RESPICLICK [Concomitant]
     Active Substance: ALBUTEROL SULFATE

REACTIONS (4)
  - Rotator cuff syndrome [Unknown]
  - Dry skin [Unknown]
  - Sleep disorder [Unknown]
  - Incorrect dose administered [Unknown]
